FAERS Safety Report 17293227 (Version 1)
Quarter: 2020Q1

REPORT INFORMATION
  Report Type: Spontaneous
  Country: CA (occurrence: CA)
  Receive Date: 20200121
  Receipt Date: 20200121
  Transmission Date: 20200409
  Serious: Yes (Hospitalization)
  Sender: FDA-Public Use
  Company Number: CA-TEVA-2020-CA-1171017

PATIENT
  Age: 11 Year
  Sex: Male

DRUGS (6)
  1. METHOTREXATE. [Suspect]
     Active Substance: METHOTREXATE
     Indication: MACULAR OEDEMA
     Route: 058
  2. DEXAMETHASONE. [Suspect]
     Active Substance: DEXAMETHASONE
     Indication: MACULAR OEDEMA
     Route: 061
  3. FOLIC ACID. [Concomitant]
     Active Substance: FOLIC ACID
     Dosage: 2 MILLIGRAM DAILY;
     Route: 048
  4. HOMATROPINE [Concomitant]
     Active Substance: HOMATROPINE HYDROBROMIDE
     Indication: MACULAR OEDEMA
     Dosage: IN BOTH THE EYES
     Route: 031
  5. PREDNISOLONE. [Suspect]
     Active Substance: PREDNISOLONE
     Indication: MACULAR OEDEMA
     Route: 061
  6. OZURDEX [Suspect]
     Active Substance: DEXAMETHASONE
     Indication: MACULAR OEDEMA
     Dosage: INTRAVITREAL IMPLANT
     Route: 065

REACTIONS (3)
  - Drug ineffective [Unknown]
  - Macular oedema [Recovered/Resolved]
  - Off label use [Unknown]
